FAERS Safety Report 10249469 (Version 2)
Quarter: 2014Q2

REPORT INFORMATION
  Report Type: Report from Study
  Country: FR (occurrence: FR)
  Receive Date: 20140620
  Receipt Date: 20140620
  Transmission Date: 20141212
  Serious: Yes (Hospitalization)
  Sender: FDA-Public Use
  Company Number: FR-DSJP-DSM-2013-00731

PATIENT
  Sex: 0

DRUGS (3)
  1. ALTEIS 20 MG [Suspect]
     Indication: HYPERTENSION
     Route: 048
     Dates: start: 201001, end: 20130203
  2. AVODART [Concomitant]
     Indication: BENIGN PROSTATIC HYPERPLASIA
     Dosage: EVERY
     Route: 048
  3. XATRAL [Concomitant]
     Indication: BENIGN PROSTATIC HYPERPLASIA
     Dosage: EVERY
     Route: 065

REACTIONS (12)
  - Enterocolitis [Not Recovered/Not Resolved]
  - Intestinal villi atrophy [Recovered/Resolved]
  - Diarrhoea [Recovered/Resolved]
  - Biopsy bone marrow abnormal [Recovering/Resolving]
  - Carbohydrate antigen 19-9 increased [Unknown]
  - Malnutrition [Unknown]
  - Weight decreased [Recovering/Resolving]
  - Anaemia [Recovered/Resolved]
  - Hypotension [Unknown]
  - Gastrointestinal infection [Unknown]
  - Malabsorption [Unknown]
  - Crohn^s disease [Unknown]
